FAERS Safety Report 8956295 (Version 1)
Quarter: 2012Q4

REPORT INFORMATION
  Report Type: 
  Country: GB (occurrence: GB)
  Receive Date: 20121210
  Receipt Date: 20121210
  Transmission Date: 20130627
  Serious: Yes (Life-Threatening, Hospitalization)
  Sender: FDA-Public Use
  Company Number: PHHY2012GB112839

PATIENT
  Age: 88 Year
  Sex: Female

DRUGS (8)
  1. DONEPEZIL [Suspect]
     Indication: DEMENTIA ALZHEIMER^S TYPE
     Dosage: 5 mg, QD
     Route: 048
     Dates: start: 20121112, end: 20121127
  2. ALENDRONATE [Concomitant]
  3. PARACETAMOL [Concomitant]
  4. FUROSEMIDE [Concomitant]
  5. SIMVASTATIN [Concomitant]
  6. HYDROXYCHLOROQUINE [Concomitant]
  7. ADCAL-D3 [Concomitant]
  8. DOCUSATE [Concomitant]

REACTIONS (2)
  - Rectal haemorrhage [Recovered/Resolved]
  - Circulatory collapse [Recovered/Resolved]
